FAERS Safety Report 6621043-3 (Version None)
Quarter: 2010Q1

REPORT INFORMATION
  Report Type: 
  Country: None (occurrence: None)
  Receive Date: 20100309
  Receipt Date: 20100301
  Transmission Date: 20100710
  Serious: Yes (Hospitalization)
  Sender: FDA-Public Use
  Company Number: A0761193A

PATIENT
  Age: 51 Year
  Sex: Female
  Weight: 90.9 kg

DRUGS (13)
  1. AVANDIA [Suspect]
     Indication: TYPE 2 DIABETES MELLITUS
     Dosage: 4MG TWICE PER DAY
     Route: 048
     Dates: start: 20060901, end: 20070215
  2. AVANDAMET [Suspect]
     Indication: TYPE 2 DIABETES MELLITUS
     Route: 048
     Dates: start: 20050101, end: 20060811
  3. GLUCOPHAGE [Concomitant]
  4. HUMALOG [Concomitant]
  5. GLUCOTROL [Concomitant]
  6. METOPROLOL [Concomitant]
  7. LISINOPRIL [Concomitant]
  8. VYTORIN [Concomitant]
  9. NORVASC [Concomitant]
  10. PERCOCET [Concomitant]
  11. XANAX [Concomitant]
  12. ZOCOR [Concomitant]
  13. BYETTA [Concomitant]

REACTIONS (10)
  - ACUTE CORONARY SYNDROME [None]
  - CARDIAC FAILURE CONGESTIVE [None]
  - CEREBRAL INFARCTION [None]
  - CORONARY ARTERY DISEASE [None]
  - DRUG DISPENSING ERROR [None]
  - INCORRECT DOSE ADMINISTERED [None]
  - MEDICATION ERROR [None]
  - MYOCARDIAL INFARCTION [None]
  - PLEURAL EFFUSION [None]
  - SEPSIS [None]
